FAERS Safety Report 8838148 (Version 1)
Quarter: 2012Q4

REPORT INFORMATION
  Report Type: Spontaneous
  Country: US (occurrence: None)
  Receive Date: 20121011
  Receipt Date: 20121011
  Transmission Date: 20130627
  Serious: Yes (Disabling)
  Sender: FDA-Public Use
  Company Number: None

PATIENT
  Sex: Male
  Weight: 68.04 kg

DRUGS (1)
  1. FLOMAX [Suspect]
     Indication: ENLARGED PROSTATE
     Dosage: 4mg 1x a day
     Dates: start: 20120910, end: 20120709

REACTIONS (2)
  - Erectile dysfunction [None]
  - Unevaluable event [None]
